FAERS Safety Report 10574535 (Version 2)
Quarter: 2015Q1

REPORT INFORMATION
  Report Type: Spontaneous
  Country: SG (occurrence: SG)
  Receive Date: 20141110
  Receipt Date: 20150112
  Transmission Date: 20150720
  Serious: Yes (Other)
  Sender: FDA-Public Use
  Company Number: SG-ELI_LILLY_AND_COMPANY-SG201411002431

PATIENT
  Age: 79 Year
  Sex: Male

DRUGS (2)
  1. DONEPEZIL [Interacting]
     Active Substance: DONEPEZIL
     Indication: DEMENTIA ALZHEIMER^S TYPE
     Dosage: UNK, UNKNOWN
     Route: 065
     Dates: start: 201206, end: 201208
  2. FLUOXETINE HYDROCHLORIDE. [Suspect]
     Active Substance: FLUOXETINE HYDROCHLORIDE
     Indication: DEPRESSION
     Dosage: 80 MG, QD
     Route: 065
     Dates: start: 2008, end: 201208

REACTIONS (6)
  - Aspartate aminotransferase increased [Recovered/Resolved]
  - Drug interaction [Recovered/Resolved]
  - Lethargy [Unknown]
  - Decreased appetite [Unknown]
  - Alanine aminotransferase increased [Recovered/Resolved]
  - Hepatotoxicity [Recovered/Resolved]

NARRATIVE: CASE EVENT DATE: 201010
